FAERS Safety Report 12374156 (Version 1)
Quarter: 2016Q2

REPORT INFORMATION
  Report Type: Other
  Country: US (occurrence: US)
  Receive Date: 20160517
  Receipt Date: 20160517
  Transmission Date: 20160815
  Serious: Yes (Other)
  Sender: FDA-Public Use
  Company Number: US-SHIRE-US201605747

PATIENT
  Sex: Female

DRUGS (1)
  1. LIALDA [Suspect]
     Active Substance: MESALAMINE
     Indication: COLITIS
     Dosage: 2.4 G, (TWO 1.2 G TABLETS) 1X/DAY:QD
     Route: 048
     Dates: start: 20160223, end: 20160501

REACTIONS (3)
  - Haemorrhage [Recovering/Resolving]
  - Adverse drug reaction [Recovering/Resolving]
  - Drug ineffective [Recovered/Resolved]

NARRATIVE: CASE EVENT DATE: 2016
